FAERS Safety Report 9536663 (Version 4)
Quarter: 2015Q2

REPORT INFORMATION
  Report Type: Report from Study
  Country: CA (occurrence: CA)
  Receive Date: 20130919
  Receipt Date: 20150416
  Transmission Date: 20150821
  Serious: Yes (Hospitalization, Other)
  Sender: FDA-Public Use
  Company Number: CA-ABBVIE-13P-028-1126631-00

PATIENT
  Age: 67 Year
  Sex: Female
  Weight: 88.08 kg

DRUGS (1)
  1. HUMIRA [Suspect]
     Active Substance: ADALIMUMAB
     Indication: CROHN^S DISEASE
     Route: 058
     Dates: start: 20091116, end: 20130710

REACTIONS (7)
  - Intestinal polyp [Unknown]
  - Phlebitis [Recovered/Resolved]
  - Asthenia [Recovering/Resolving]
  - Gastrointestinal infection [Recovering/Resolving]
  - Skin cancer [Unknown]
  - Crohn^s disease [Unknown]
  - Intestinal obstruction [Recovering/Resolving]

NARRATIVE: CASE EVENT DATE: 201307
